FAERS Safety Report 20893098 (Version 1)
Quarter: 2022Q2

REPORT INFORMATION
  Report Type: Spontaneous
  Country: US (occurrence: None)
  Receive Date: 20220531
  Receipt Date: 20220531
  Transmission Date: 20220721
  Serious: Yes (Hospitalization, Other)
  Sender: FDA-Public Use
  Company Number: US-MLMSERVICE-20220516-3560529-1

PATIENT
  Age: 56 Year
  Sex: Male

DRUGS (7)
  1. METHOTREXATE [Suspect]
     Active Substance: METHOTREXATE
     Indication: Seronegative arthritis
     Dosage: UNKNOWN
     Route: 065
     Dates: start: 2019
  2. PREDNISONE [Suspect]
     Active Substance: PREDNISONE
     Indication: Seronegative arthritis
     Route: 048
     Dates: start: 2019
  3. PREDNISONE [Suspect]
     Active Substance: PREDNISONE
     Dosage: TAPERING
     Route: 048
     Dates: start: 202002
  4. PREDNISONE [Suspect]
     Active Substance: PREDNISONE
     Route: 048
     Dates: end: 202002
  5. TOFACITINIB [Suspect]
     Active Substance: TOFACITINIB
     Indication: Seronegative arthritis
     Dosage: UNKNOWN
     Route: 065
     Dates: start: 201911, end: 2020
  6. ETANERCEPT [Suspect]
     Active Substance: ETANERCEPT
     Indication: Seronegative arthritis
     Dosage: UNKNOWN
     Route: 065
     Dates: start: 2019
  7. ADALIMUMAB [Suspect]
     Active Substance: ADALIMUMAB
     Indication: Seronegative arthritis
     Dosage: UNKNOWN
     Route: 065
     Dates: start: 2019

REACTIONS (3)
  - Immune reconstitution inflammatory syndrome [Recovered/Resolved]
  - Skin bacterial infection [Recovered/Resolved]
  - Mycobacterium chelonae infection [Recovered/Resolved]

NARRATIVE: CASE EVENT DATE: 20200101
